FAERS Safety Report 8499681-5 (Version None)
Quarter: 2012Q2

REPORT INFORMATION
  Report Type: 
  Country: None (occurrence: None)
  Receive Date: 20120629
  Receipt Date: 20120618
  Transmission Date: 20120825
  Serious: Yes (Death, Other)
  Sender: FDA-Public Use
  Company Number: 2012P1042588

PATIENT
  Age: 40 Year
  Sex: Female

DRUGS (5)
  1. MIRTAZAPINE [Concomitant]
  2. VENLAFAXINE HCL EXTENDED-RELEASE [Concomitant]
  3. QUETIAPINE [Concomitant]
  4. LAMOTRIGINE [Suspect]
     Dosage: 100 MG;QD;PO
     Route: 048
  5. FERROUS SULFATE TAB [Concomitant]

REACTIONS (25)
  - ALANINE AMINOTRANSFERASE INCREASED [None]
  - ASPARTATE AMINOTRANSFERASE INCREASED [None]
  - LEUKAEMIA [None]
  - LUNG CONSOLIDATION [None]
  - AGRANULOCYTOSIS [None]
  - CELLULITIS ORBITAL [None]
  - PRODUCTIVE COUGH [None]
  - LUNG NEOPLASM [None]
  - PHARYNGITIS [None]
  - FEBRILE NEUTROPENIA [None]
  - RENAL FAILURE ACUTE [None]
  - HAEMODIALYSIS [None]
  - SEPTIC SHOCK [None]
  - ENTEROCOCCUS TEST POSITIVE [None]
  - GENERAL PHYSICAL HEALTH DETERIORATION [None]
  - BLOOD POTASSIUM DECREASED [None]
  - LUNG INFECTION [None]
  - BLOOD BILIRUBIN INCREASED [None]
  - BILIRUBIN CONJUGATED INCREASED [None]
  - PLATELET COUNT DECREASED [None]
  - CHILLS [None]
  - CARDIAC ARREST [None]
  - ORAL CANDIDIASIS [None]
  - CONVULSION [None]
  - UNRESPONSIVE TO STIMULI [None]
